FAERS Safety Report 11100515 (Version 3)
Quarter: 2015Q4

REPORT INFORMATION
  Report Type: Spontaneous
  Country: US (occurrence: US)
  Receive Date: 20150508
  Receipt Date: 20151117
  Transmission Date: 20160304
  Serious: Yes (Death, Hospitalization, Other)
  Sender: FDA-Public Use
  Company Number: US-MERCK-1505USA002829

PATIENT
  Sex: Male
  Weight: 83.9 kg

DRUGS (2)
  1. JANUVIA [Suspect]
     Active Substance: SITAGLIPTIN PHOSPHATE
     Indication: DIABETES MELLITUS
     Dosage: 100 MG, QD
     Route: 048
     Dates: start: 201207, end: 20131004
  2. GLUCOPHAGE [Suspect]
     Active Substance: METFORMIN HYDROCHLORIDE
     Indication: DIABETES MELLITUS
     Dosage: UNK
     Route: 065
     Dates: end: 20130525

REACTIONS (9)
  - Pancreatitis [Unknown]
  - Depression [Unknown]
  - Hypertension [Unknown]
  - Peripheral arterial occlusive disease [Unknown]
  - Pancreatic carcinoma [Unknown]
  - Blood cholesterol increased [Unknown]
  - Spleen disorder [Unknown]
  - Death [Fatal]
  - Chronic obstructive pulmonary disease [Unknown]

NARRATIVE: CASE EVENT DATE: 20130522
